FAERS Safety Report 10667849 (Version 1)
Quarter: 2014Q4

REPORT INFORMATION
  Report Type: Spontaneous
  Country: US (occurrence: None)
  Receive Date: 20141219
  Receipt Date: 20141219
  Transmission Date: 20150529
  Serious: Yes (Disabling)
  Sender: FDA-Public Use
  Company Number: None

PATIENT
  Age: 53 Year
  Sex: Female
  Weight: 72.58 kg

DRUGS (1)
  1. VYVANSE [Suspect]
     Active Substance: LISDEXAMFETAMINE DIMESYLATE
     Indication: ATTENTION DEFICIT/HYPERACTIVITY DISORDER
     Dosage: 1 PILL, ONCE DAILY, TAKEN BY MOUTH
     Route: 048

REACTIONS (7)
  - Dry mouth [None]
  - Hypertrophy of tongue papillae [None]
  - Oral disorder [None]
  - Dysgeusia [None]
  - Hypoaesthesia oral [None]
  - Glossodynia [None]
  - Hypogeusia [None]

NARRATIVE: CASE EVENT DATE: 20141015
